FAERS Safety Report 8217662-3 (Version None)
Quarter: 2012Q1

REPORT INFORMATION
  Report Type: 
  Country: None (occurrence: None)
  Receive Date: 20120314
  Receipt Date: 20120228
  Transmission Date: 20120608
  Serious: Yes (Other)
  Sender: FDA-Public Use
  Company Number: GB-DEXPHARM-20120069

PATIENT

DRUGS (1)
  1. CHLORHEXIDINE GLUCONATE [Suspect]
     Dosage: 2.0% PERCENT

REACTIONS (3)
  - CHEMICAL INJURY [None]
  - APPLICATION SITE BURN [None]
  - PALLOR [None]
